FAERS Safety Report 14721503 (Version 4)
Quarter: 2018Q2

REPORT INFORMATION
  Report Type: Report from Study
  Country: US (occurrence: US)
  Receive Date: 20180405
  Receipt Date: 20180627
  Transmission Date: 20180711
  Serious: Yes (Death, Hospitalization)
  Sender: FDA-Public Use
  Company Number: US-THERATECHNOLOGIES, INC.-TH-2018-00230

PATIENT

DRUGS (28)
  1. MIRALAX [Concomitant]
     Active Substance: POLYETHYLENE GLYCOL 3350
     Dosage: 3350 NF POW
  2. PREDNISONE. [Concomitant]
     Active Substance: PREDNISONE
     Dosage: 20 MG MILLIGRAM(S) TAB, UNK
  3. RANITIDINE. [Concomitant]
     Active Substance: RANITIDINE
     Dosage: 300 MG MILLIGRAM(S) TAB, UNK
  4. LORAZEPAM. [Concomitant]
     Active Substance: LORAZEPAM
     Dosage: 1 MG MILLIGRAM(S) TAB, UNK
  5. SOMA [Concomitant]
     Active Substance: CARISOPRODOL
     Dosage: 250 MG MILLIGRAM(S) TAB, UNK
  6. PREDNISONE. [Concomitant]
     Active Substance: PREDNISONE
     Dosage: 20 MG MILLIGRAM(S) TAB, UNK
  7. ALLEGRA [Concomitant]
     Active Substance: FEXOFENADINE HYDROCHLORIDE
     Dosage: 180 MG MILLIGRAM(S) TAB, UNK
  8. SUMATRIPTAN. [Concomitant]
     Active Substance: SUMATRIPTAN
     Dosage: 100 MG MILLIGRAM(S) TAB, UNK
  9. SUDAFED [Concomitant]
     Active Substance: PSEUDOEPHEDRINE HYDROCHLORIDE
     Dosage: 30 MG MILLIGRAM(S) TAB, UNK
  10. TRIMETHOPRIME [Concomitant]
     Active Substance: TRIMETHOPRIM
     Dosage: 100 MG MILLIGRAM(S) TAB, UNK
  11. OXYCO/APAP [Concomitant]
     Dosage: 10-650 MG MILLIGRAM(S), UNK
  12. EGRIFTA [Suspect]
     Active Substance: TESAMORELIN
     Indication: HIV INFECTION
     Dosage: 2 MG MILLIGRAM(S), QD
     Route: 058
     Dates: start: 20111108
  13. DESCOVY [Concomitant]
     Active Substance: EMTRICITABINE\TENOFOVIR ALAFENAMIDE FUMARATE
     Dosage: 200/20 TAB, UNK
  14. ALBUTEROL. [Concomitant]
     Active Substance: ALBUTEROL
     Dosage: 90 ?G MICROGRAM(S), UNK
     Route: 045
  15. PREDNISONE. [Concomitant]
     Active Substance: PREDNISONE
     Dosage: 5 MG MILLIGRAM(S) TAB, UNK
  16. ISENTRESS [Concomitant]
     Active Substance: RALTEGRAVIR POTASSIUM
     Dosage: 400 MG MILLIGRAM(S) TAB, UNK
  17. IBUPROFEN. [Concomitant]
     Active Substance: IBUPROFEN
     Dosage: 200 MG MILLIGRAM(S) CAP, UNK
  18. DILAUDID INJ 1MG/ML [Concomitant]
     Dosage: 180 MG MILLIGRAM(S) TAB, UNK
  19. EGRIFTA [Suspect]
     Active Substance: TESAMORELIN
     Indication: LIPODYSTROPHY ACQUIRED
  20. TRICOR                             /00090101/ [Concomitant]
     Active Substance: ADENOSINE
     Dosage: 145 MG MILLIGRAM(S) TAB, UNK
  21. SUDAFED [Concomitant]
     Active Substance: PSEUDOEPHEDRINE HYDROCHLORIDE
     Dosage: UNK
  22. AMLODIPINE [Concomitant]
     Active Substance: AMLODIPINE BESYLATE
     Dosage: 2.5 MG MILLIGRAM(S) TAB, UNK
  23. METHADONE [Concomitant]
     Active Substance: METHADONE HYDROCHLORIDE
     Dosage: POW, UNK
  24. PERCOCET [Concomitant]
     Active Substance: ACETAMINOPHEN\OXYCODONE HYDROCHLORIDE
     Dosage: 10-650 MG MILLIGRAM(S), UNK
  25. SIMETHICONE (DIMETHICONE) [Concomitant]
     Active Substance: DIMETHICONE
     Dosage: 80 MG MILLIGRAM(S) CHW, UNK
  26. BACTRIM [Concomitant]
     Active Substance: SULFAMETHOXAZOLE\TRIMETHOPRIM
     Dosage: 400-80 MG MILLIGRAM(S) TAB, UNK
  27. COLACE [Concomitant]
     Active Substance: DOCUSATE SODIUM
     Dosage: 100 MG MILLIGRAM(S) CAP, UNK
  28. MOVANTIK [Concomitant]
     Active Substance: NALOXEGOL OXALATE
     Dosage: 25 MG MILLIGRAM(S), UNK

REACTIONS (7)
  - Pneumonia [Recovering/Resolving]
  - Death [Fatal]
  - Large intestine perforation [Recovering/Resolving]
  - Abdominal pain [Recovering/Resolving]
  - Colon operation [Recovering/Resolving]
  - Appendicitis [Not Recovered/Not Resolved]
  - Pancreatitis [Recovered/Resolved]

NARRATIVE: CASE EVENT DATE: 20180223
